FAERS Safety Report 18974944 (Version 1)
Quarter: 2021Q1

REPORT INFORMATION
  Report Type: Report from Study
  Country: None (occurrence: US)
  Receive Date: 20210305
  Receipt Date: 20210305
  Transmission Date: 20210420
  Serious: Yes (Other)
  Sender: FDA-Public Use
  Company Number: US-ABBVIE-21K-163-3801477-00

PATIENT
  Sex: Female

DRUGS (1)
  1. HUMIRA [Suspect]
     Active Substance: ADALIMUMAB
     Indication: CROHN^S DISEASE
     Route: 058

REACTIONS (4)
  - Neoplasm malignant [Recovered/Resolved]
  - Anxiety [Not Recovered/Not Resolved]
  - Cholecystectomy [Recovered/Resolved]
  - Osteopetrosis [Not Recovered/Not Resolved]
